FAERS Safety Report 10967150 (Version 2)
Quarter: 2015Q2

REPORT INFORMATION
  Report Type: Spontaneous
  Country: CN (occurrence: CN)
  Receive Date: 20150330
  Receipt Date: 20150409
  Transmission Date: 20150821
  Serious: Yes (Other)
  Sender: FDA-Public Use
  Company Number: CN-BAYER-2015-060636

PATIENT

DRUGS (1)
  1. NEXAVAR [Suspect]
     Active Substance: SORAFENIB
     Indication: RENAL CELL CARCINOMA
     Dosage: UNK
     Route: 048
     Dates: start: 201412

REACTIONS (5)
  - Oesophageal injury [None]
  - Pyrexia [None]
  - Foreign body [None]
  - Pharyngeal oedema [None]
  - Discomfort [None]

NARRATIVE: CASE EVENT DATE: 201501
